FAERS Safety Report 14024618 (Version 1)
Quarter: 2017Q3

REPORT INFORMATION
  Report Type: Spontaneous
  Country: US (occurrence: US)
  Receive Date: 20170928
  Receipt Date: 20170928
  Transmission Date: 20171128
  Serious: Yes (Other)
  Sender: FDA-Public Use
  Company Number: US-SA-2017SA017172

PATIENT
  Age: 31 Year
  Sex: Female

DRUGS (7)
  1. VITAMIN C [Concomitant]
     Active Substance: ASCORBIC ACID
  2. AUBAGIO [Suspect]
     Active Substance: TERIFLUNOMIDE
     Indication: MULTIPLE SCLEROSIS
     Route: 048
  3. SPRINTEC [Concomitant]
     Active Substance: ETHINYL ESTRADIOL\NORGESTIMATE
  4. FLONASE [Concomitant]
     Active Substance: FLUTICASONE PROPIONATE
  5. SINGULAIR [Concomitant]
     Active Substance: MONTELUKAST SODIUM
  6. ALBUTEROL SULFATE. [Concomitant]
     Active Substance: ALBUTEROL SULFATE
  7. ALEVE [Concomitant]
     Active Substance: NAPROXEN SODIUM

REACTIONS (5)
  - Multiple sclerosis relapse [Not Recovered/Not Resolved]
  - Nausea [Unknown]
  - Decreased interest [Not Recovered/Not Resolved]
  - Depression [Not Recovered/Not Resolved]
  - Abdominal discomfort [Unknown]
